FAERS Safety Report 13496037 (Version 1)
Quarter: 2017Q2

REPORT INFORMATION
  Report Type: Spontaneous
  Country: US (occurrence: US)
  Receive Date: 20170428
  Receipt Date: 20170428
  Transmission Date: 20170830
  Serious: No
  Sender: FDA-Public Use
  Company Number: US-GLAXOSMITHKLINE-US2017056090

PATIENT
  Age: 72 Year
  Sex: Female

DRUGS (4)
  1. ZOVIRAX [Concomitant]
     Active Substance: ACYCLOVIR
     Indication: PRODUCT USED FOR UNKNOWN INDICATION
     Dosage: UNK
  2. CARMEX [Concomitant]
     Active Substance: CAMPHOR\MENTHOL\PHENOL\POTASSIUM ALUM\SALICYLIC ACID
     Indication: LIP PAIN
     Dosage: UNK
  3. ABREVA [Suspect]
     Active Substance: DOCOSANOL
     Dosage: UNK
     Dates: start: 20170411
  4. ABREVA [Suspect]
     Active Substance: DOCOSANOL
     Indication: ORAL HERPES
     Dosage: UNK

REACTIONS (2)
  - Drug ineffective [Unknown]
  - Incorrect drug administration duration [Unknown]
